FAERS Safety Report 21810660 (Version 1)
Quarter: 2022Q4

REPORT INFORMATION
  Report Type: Spontaneous
  Country: US (occurrence: None)
  Receive Date: 20221230
  Receipt Date: 20221230
  Transmission Date: 20230113
  Serious: Yes (Other)
  Sender: FDA-Public Use
  Company Number: None

PATIENT
  Age: 45 Year
  Sex: Female
  Weight: 112.5 kg

DRUGS (7)
  1. LAMOTRIGINE [Suspect]
     Active Substance: LAMOTRIGINE
     Indication: Epilepsy
     Dosage: OTHER QUANTITY : 1 CAPSULE(S);?FREQUENCY : TWICE A DAY;?
     Route: 048
     Dates: start: 20221211, end: 20221229
  2. TOPIRAMATE [Concomitant]
     Active Substance: TOPIRAMATE
  3. NURTEC ODT [Concomitant]
     Active Substance: RIMEGEPANT SULFATE
  4. EMGALITY [Concomitant]
     Active Substance: GALCANEZUMAB-GNLM
  5. CANNABIDIOL [Concomitant]
     Active Substance: CANNABIDIOL
  6. TYLENOL [Concomitant]
     Active Substance: ACETAMINOPHEN
  7. ADVIL [Concomitant]
     Active Substance: IBUPROFEN

REACTIONS (8)
  - Abdominal pain upper [None]
  - Decreased appetite [None]
  - Vomiting [None]
  - Headache [None]
  - Dizziness [None]
  - Tremor [None]
  - Tremor [None]
  - Seizure [None]

NARRATIVE: CASE EVENT DATE: 20221211
